FAERS Safety Report 23769834 (Version 1)
Quarter: 2024Q2

REPORT INFORMATION
  Report Type: Spontaneous
  Country: US (occurrence: US)
  Receive Date: 20240422
  Receipt Date: 20240422
  Transmission Date: 20240715
  Serious: Yes (Hospitalization, Other)
  Sender: FDA-Public Use
  Company Number: US-MYLANLABS-2024M1035954

PATIENT
  Age: 45 Year
  Sex: Female

DRUGS (14)
  1. LITHIUM [Suspect]
     Active Substance: LITHIUM
     Indication: Mood swings
     Dosage: UNK
     Route: 065
  2. QUETIAPINE [Suspect]
     Active Substance: QUETIAPINE
     Indication: Mood swings
     Dosage: UNK
     Route: 065
  3. CLOZAPINE [Suspect]
     Active Substance: CLOZAPINE
     Indication: Mood swings
     Dosage: UNK
     Route: 065
  4. LAMOTRIGINE [Suspect]
     Active Substance: LAMOTRIGINE
     Indication: Mood swings
     Dosage: UNK
     Route: 065
  5. OLANZAPINE [Suspect]
     Active Substance: OLANZAPINE
     Indication: Mood swings
     Dosage: UNK
     Route: 065
  6. OLANZAPINE [Suspect]
     Active Substance: OLANZAPINE
     Dosage: 25 MILLIGRAM
     Route: 065
  7. OLANZAPINE [Suspect]
     Active Substance: OLANZAPINE
     Dosage: 5 MILLIGRAM
     Route: 065
  8. TOPIRAMATE [Suspect]
     Active Substance: TOPIRAMATE
     Indication: Product used for unknown indication
     Dosage: UNK
     Route: 065
  9. METFORMIN [Suspect]
     Active Substance: METFORMIN HYDROCHLORIDE
     Indication: Product used for unknown indication
     Dosage: UNK
     Route: 065
  10. NALTREXONE [Suspect]
     Active Substance: NALTREXONE
     Indication: Product used for unknown indication
     Dosage: UNK
     Route: 065
  11. MELATONIN [Suspect]
     Active Substance: MELATONIN
     Indication: Product used for unknown indication
     Dosage: UNK
     Route: 065
  12. SEMAGLUTIDE [Suspect]
     Active Substance: SEMAGLUTIDE
     Indication: Product used for unknown indication
     Dosage: UNK
     Route: 065
  13. OLANZAPINE\SAMIDORPHAN [Concomitant]
     Active Substance: OLANZAPINE\SAMIDORPHAN
     Indication: Bipolar I disorder
     Dosage: UNK
     Route: 065
  14. OLANZAPINE\SAMIDORPHAN [Concomitant]
     Active Substance: OLANZAPINE\SAMIDORPHAN
     Indication: Borderline personality disorder
     Dosage: UNK (DOSE LOWERED)
     Route: 065

REACTIONS (6)
  - Drug ineffective [Unknown]
  - Impaired gastric emptying [Unknown]
  - Suicidal ideation [Unknown]
  - Weight increased [Recovering/Resolving]
  - Nausea [Unknown]
  - Off label use [Unknown]
